FAERS Safety Report 7574212-2 (Version None)
Quarter: 2011Q2

REPORT INFORMATION
  Report Type: 
  Country: None (occurrence: None)
  Receive Date: 20110627
  Receipt Date: 20110615
  Transmission Date: 20111010
  Serious: Yes (Other)
  Sender: FDA-Public Use
  Company Number: DE-MILLENNIUM PHARMACEUTICALS, INC.-2011-02526

PATIENT

DRUGS (3)
  1. VELCADE [Suspect]
     Indication: MULTIPLE MYELOMA
     Dosage: UNK
     Route: 042
     Dates: start: 20110301
  2. PREDNISONE [Concomitant]
     Dosage: UNK
     Dates: start: 20110301
  3. MELPHALAN HYDROCHLORIDE [Concomitant]
     Dosage: UNK
     Dates: start: 20110301

REACTIONS (2)
  - SKIN REACTION [None]
  - PSORIASIS [None]
